FAERS Safety Report 12060101 (Version 1)
Quarter: 2016Q1

REPORT INFORMATION
  Report Type: Spontaneous
  Country: GB (occurrence: GB)
  Receive Date: 20160210
  Receipt Date: 20160210
  Transmission Date: 20160526
  Serious: Yes (Life-Threatening)
  Sender: FDA-Public Use
  Company Number: GB-TEVA-631624ACC

PATIENT
  Age: 31 Year
  Sex: Female
  Weight: 56.69 kg

DRUGS (2)
  1. OLANZAPINE. [Suspect]
     Active Substance: OLANZAPINE
     Indication: DEPRESSION
     Route: 048
  2. TIOPRONIN [Concomitant]
     Active Substance: TIOPRONIN

REACTIONS (1)
  - Anaphylactic shock [Recovered/Resolved]
